FAERS Safety Report 7804303-X (Version None)
Quarter: 2011Q4

REPORT INFORMATION
  Report Type: 
  Country: None (occurrence: None)
  Receive Date: 20111010
  Receipt Date: 20110926
  Transmission Date: 20120403
  Serious: Yes (Other)
  Sender: FDA-Public Use
  Company Number: US-BAYER-2010-007194

PATIENT
  Age: 39 Year
  Sex: Female
  Weight: 67.12 kg

DRUGS (21)
  1. CIPROFLOXACIN [Concomitant]
  2. YAZ [Suspect]
     Indication: ACNE
  3. AZITHROMYCIN [Concomitant]
  4. ZIAC [Concomitant]
     Indication: HYPERTENSION
     Dosage: UNK UNK, QD
     Route: 048
     Dates: start: 20071130
  5. YAZ [Suspect]
     Indication: CONTRACEPTION
     Dosage: UNK
     Route: 048
     Dates: start: 20030101, end: 20080201
  6. YAZ [Suspect]
     Indication: PREMENSTRUAL SYNDROME
  7. IBUPROFEN [Concomitant]
     Dosage: UNK
     Dates: start: 20090101
  8. NAMENDA [Concomitant]
     Indication: MEMORY IMPAIRMENT
     Dosage: UNK
     Dates: start: 20090101
  9. NORVASC [Concomitant]
     Indication: HYPERTENSION
     Dosage: UNK
     Dates: start: 20050101
  10. YASMIN [Suspect]
     Indication: ACNE
  11. LEXAPRO [Concomitant]
     Indication: DEPRESSION
     Dosage: UNK
     Dates: start: 20040101, end: 20050101
  12. ACETAMINOPHEN [Concomitant]
  13. CITALOPRAM [Concomitant]
     Indication: ANXIETY
  14. LEVAQUIN [Concomitant]
     Dosage: 500 MG, UNK
     Dates: start: 20071029
  15. AMBIEN [Concomitant]
     Indication: SLEEP DISORDER
     Dosage: UNK
     Dates: start: 20040101, end: 20090101
  16. LEXAPRO [Concomitant]
     Indication: ANXIETY
  17. CITALOPRAM [Concomitant]
     Indication: DEPRESSION
     Dosage: UNK
     Dates: start: 20090101
  18. YASMIN [Suspect]
     Indication: CONTRACEPTION
     Dosage: UNK
     Route: 048
     Dates: start: 20030101, end: 20080201
  19. YASMIN [Suspect]
     Indication: PREMENSTRUAL SYNDROME
  20. GABAPENTIN [Concomitant]
     Indication: CONVULSION
     Dosage: UNK
     Dates: start: 20080101
  21. LISINOPRIL [Concomitant]
     Indication: HYPERTENSION
     Dosage: UNK
     Dates: start: 20050101

REACTIONS (27)
  - TRANSIENT ISCHAEMIC ATTACK [None]
  - CONCUSSION [None]
  - MENTAL IMPAIRMENT [None]
  - SPEECH DISORDER [None]
  - HYPERACUSIS [None]
  - BODY TEMPERATURE INCREASED [None]
  - DISTURBANCE IN ATTENTION [None]
  - OBSESSIVE-COMPULSIVE DISORDER [None]
  - FATIGUE [None]
  - VOMITING [None]
  - DIPLOPIA [None]
  - CHOLELITHIASIS [None]
  - DEPRESSION [None]
  - CONVERSION DISORDER [None]
  - CARPAL TUNNEL SYNDROME [None]
  - HEADACHE [None]
  - ANXIETY [None]
  - MENTAL DISORDER [None]
  - BENIGN HEPATIC NEOPLASM [None]
  - VISUAL IMPAIRMENT [None]
  - CONVULSION [None]
  - ABDOMINAL PAIN [None]
  - SYNCOPE [None]
  - CRANIOCEREBRAL INJURY [None]
  - DIZZINESS [None]
  - HYPOAESTHESIA [None]
  - DYSPHEMIA [None]
